FAERS Safety Report 11839336 (Version 1)
Quarter: 2015Q4

REPORT INFORMATION
  Report Type: Spontaneous
  Country: GB (occurrence: GB)
  Receive Date: 20151216
  Receipt Date: 20151216
  Transmission Date: 20160305
  Serious: Yes (Other)
  Sender: FDA-Public Use
  Company Number: GB-ACCORD-036172

PATIENT
  Age: 59 Year
  Sex: Female
  Weight: 93 kg

DRUGS (6)
  1. E45 [Concomitant]
     Active Substance: LANOLIN\LIGHT MINERAL OIL\PARAFFIN
     Dosage: APPLY TWICE DAILY
     Dates: start: 20151027, end: 20151028
  2. LOSARTAN. [Concomitant]
     Active Substance: LOSARTAN
     Dates: start: 20151125
  3. PERMETHRIN. [Concomitant]
     Active Substance: PERMETHRIN
     Dosage: USE AS DIRECTED
     Dates: start: 20151012, end: 20151019
  4. BETAMETHASONE. [Concomitant]
     Active Substance: BETAMETHASONE
     Dosage: APPLY TWICE DAILY
     Dates: start: 20151027, end: 20151028
  5. OMEPRAZOLE. [Concomitant]
     Active Substance: OMEPRAZOLE
     Dates: start: 20151125
  6. RAMIPRIL. [Suspect]
     Active Substance: RAMIPRIL
     Indication: PRODUCT USED FOR UNKNOWN INDICATION
     Dates: start: 20151125

REACTIONS (2)
  - Dyspepsia [Recovering/Resolving]
  - Abdominal discomfort [Recovering/Resolving]

NARRATIVE: CASE EVENT DATE: 20151125
